FAERS Safety Report 22066251 (Version 3)
Quarter: 2023Q1

REPORT INFORMATION
  Report Type: Spontaneous
  Country: US (occurrence: US)
  Receive Date: 20230306
  Receipt Date: 20230329
  Transmission Date: 20230417
  Serious: No
  Sender: FDA-Public Use
  Company Number: US-JNJFOC-20230300726

PATIENT
  Sex: Male
  Weight: 98.87 kg

DRUGS (5)
  1. UPTRAVI [Suspect]
     Active Substance: SELEXIPAG
     Indication: Product used for unknown indication
     Route: 065
  2. AMBRISENTAN [Suspect]
     Active Substance: AMBRISENTAN
     Indication: Pulmonary hypertension
     Route: 048
     Dates: start: 20180321
  3. AMBRISENTAN [Suspect]
     Active Substance: AMBRISENTAN
     Route: 048
  4. ADEMPAS [Concomitant]
     Active Substance: RIOCIGUAT
  5. REMICADE [Concomitant]
     Active Substance: INFLIXIMAB

REACTIONS (1)
  - Gastrointestinal disorder [Recovered/Resolved]
